FAERS Safety Report 5584112-5 (Version None)
Quarter: 2008Q1

REPORT INFORMATION
  Report Type: 
  Country: None (occurrence: None)
  Receive Date: 20080108
  Receipt Date: 20071228
  Transmission Date: 20080703
  Serious: Yes (Life-Threatening, Hospitalization)
  Sender: FDA-Public Use
  Company Number: FR-AVENTIS-200714162FR

PATIENT
  Age: 75 Year
  Sex: Male

DRUGS (7)
  1. LASIX [Suspect]
     Route: 048
  2. COKENZEN [Suspect]
     Route: 048
  3. CORDARONE [Suspect]
     Indication: ATRIAL TACHYCARDIA
     Route: 048
     Dates: start: 20060701, end: 20060701
  4. DETENSIEL                          /00802601/ [Suspect]
     Route: 048
  5. LIPANTHYL [Suspect]
     Route: 048
  6. PLAVIX [Concomitant]
     Route: 048
     Dates: start: 20060101
  7. ASASANTINE [Concomitant]
     Route: 048
     Dates: start: 20060101

REACTIONS (5)
  - CIRCULATORY COLLAPSE [None]
  - HYPERKALAEMIA [None]
  - PULSE PRESSURE DECREASED [None]
  - RENAL FAILURE [None]
  - RESPIRATORY ARREST [None]
